FAERS Safety Report 14907261 (Version 3)
Quarter: 2018Q3

REPORT INFORMATION
  Report Type: Spontaneous
  Country: JP (occurrence: JP)
  Receive Date: 20180517
  Receipt Date: 20180913
  Transmission Date: 20181010
  Serious: Yes (Other)
  Sender: FDA-Public Use
  Company Number: JP-ROCHE-2124946

PATIENT
  Age: 63 Year
  Sex: Female
  Weight: 57 kg

DRUGS (3)
  1. AVASTIN [Suspect]
     Active Substance: BEVACIZUMAB
     Indication: BREAST CANCER
     Route: 041
     Dates: start: 20180129, end: 20180204
  2. AVASTIN [Suspect]
     Active Substance: BEVACIZUMAB
     Route: 041
     Dates: start: 20180301, end: 20180429
  3. TAXOL [Concomitant]
     Active Substance: PACLITAXEL
     Indication: BREAST CANCER
     Dosage: DOSAGE IS UNCERTAIN
     Route: 041
     Dates: start: 201801, end: 201805

REACTIONS (2)
  - Hepatic cirrhosis [Not Recovered/Not Resolved]
  - Ascites [Recovering/Resolving]

NARRATIVE: CASE EVENT DATE: 201805
